FAERS Safety Report 15772778 (Version 1)
Quarter: 2018Q4

REPORT INFORMATION
  Report Type: Report from Study
  Country: JP (occurrence: JP)
  Receive Date: 20181228
  Receipt Date: 20181228
  Transmission Date: 20190205
  Serious: Yes (Hospitalization, Other)
  Sender: FDA-Public Use
  Company Number: JP-JNJFOC-20181235121

PATIENT
  Age: 25 Year
  Sex: Female
  Weight: 43 kg

DRUGS (20)
  1. PENTASA [Concomitant]
     Active Substance: MESALAMINE
     Indication: BEHCET^S SYNDROME
     Route: 048
  2. WARFARIN [Concomitant]
     Active Substance: WARFARIN
     Indication: BEHCET^S SYNDROME
     Route: 048
     Dates: start: 20180807
  3. REMICADE [Suspect]
     Active Substance: INFLIXIMAB
     Indication: BEHCET^S SYNDROME
     Route: 042
     Dates: start: 20181011
  4. PREDNISOLONE SODIUM SUCCINATE [Concomitant]
     Active Substance: PREDNISOLONE SODIUM SUCCINATE
     Indication: BEHCET^S SYNDROME
     Route: 042
     Dates: start: 20180606, end: 20180607
  5. FERROUS CITRATE [Concomitant]
     Active Substance: FERROUS CITRATE
     Indication: BEHCET^S SYNDROME
     Route: 065
     Dates: start: 20180731
  6. REMICADE [Suspect]
     Active Substance: INFLIXIMAB
     Indication: BEHCET^S SYNDROME
     Route: 042
     Dates: start: 20180606, end: 20180606
  7. PREDNISOLONE SODIUM SUCCINATE [Concomitant]
     Active Substance: PREDNISOLONE SODIUM SUCCINATE
     Indication: BEHCET^S SYNDROME
     Route: 042
     Dates: start: 20180718, end: 20180723
  8. REMICADE [Suspect]
     Active Substance: INFLIXIMAB
     Indication: BEHCET^S SYNDROME
     Route: 042
     Dates: start: 20180816, end: 20180816
  9. PREDNISOLONE SODIUM SUCCINATE [Concomitant]
     Active Substance: PREDNISOLONE SODIUM SUCCINATE
     Indication: BEHCET^S SYNDROME
     Route: 042
     Dates: start: 20180703, end: 20180709
  10. COLCHICINE. [Concomitant]
     Active Substance: COLCHICINE
     Indication: BEHCET^S SYNDROME
     Route: 048
  11. RHEUMATREX [Concomitant]
     Active Substance: METHOTREXATE SODIUM
     Indication: BEHCET^S SYNDROME
     Route: 048
  12. BAYASPIRIN [Concomitant]
     Active Substance: ASPIRIN
     Indication: BEHCET^S SYNDROME
     Route: 048
     Dates: start: 20180830
  13. MIYA-BM [Concomitant]
     Active Substance: CLOSTRIDIUM BUTYRICUM SPORES STRAIN M-55
     Indication: BEHCET^S SYNDROME
     Route: 048
     Dates: start: 20180724
  14. PREDNISOLONE SODIUM SUCCINATE [Concomitant]
     Active Substance: PREDNISOLONE SODIUM SUCCINATE
     Indication: BEHCET^S SYNDROME
     Route: 042
     Dates: start: 20180625, end: 20180702
  15. PREDNISOLONE SODIUM SUCCINATE [Concomitant]
     Active Substance: PREDNISOLONE SODIUM SUCCINATE
     Indication: BEHCET^S SYNDROME
     Route: 042
     Dates: start: 20180710, end: 20180717
  16. PREDNISOLONE. [Concomitant]
     Active Substance: PREDNISOLONE
     Route: 065
     Dates: start: 20180621, end: 20180624
  17. ADALIMUMAB [Concomitant]
     Active Substance: ADALIMUMAB
     Indication: BEHCET^S SYNDROME
     Route: 065
  18. REMICADE [Suspect]
     Active Substance: INFLIXIMAB
     Indication: BEHCET^S SYNDROME
     Route: 042
     Dates: start: 20180621, end: 20180621
  19. PREDNISOLONE. [Concomitant]
     Active Substance: PREDNISOLONE
     Route: 065
     Dates: start: 20180608, end: 20180620
  20. NEXIUM [Concomitant]
     Active Substance: ESOMEPRAZOLE MAGNESIUM
     Indication: GASTROOESOPHAGEAL REFLUX DISEASE
     Route: 048
     Dates: start: 20180807

REACTIONS (2)
  - Stoma creation [Recovered/Resolved with Sequelae]
  - Intestinal resection [Recovered/Resolved with Sequelae]

NARRATIVE: CASE EVENT DATE: 20180727
